FAERS Safety Report 26042719 (Version 1)
Quarter: 2025Q4

REPORT INFORMATION
  Report Type: Spontaneous
  Country: US (occurrence: None)
  Receive Date: 20251113
  Receipt Date: 20251113
  Transmission Date: 20260118
  Serious: Yes (Hospitalization)
  Sender: FDA-CTU
  Company Number: None

PATIENT
  Age: 80 Year
  Sex: Female

DRUGS (6)
  1. TIBSOVO [Suspect]
     Active Substance: IVOSIDENIB
     Indication: Cholangiocarcinoma
     Dosage: FREQUENCY : DAILY;?
     Route: 048
     Dates: start: 20250601
  2. tibsovo 500mg [Concomitant]
     Dates: start: 20240712
  3. ETHAMBUTOL [Concomitant]
     Active Substance: ETHAMBUTOL HYDROCHLORIDE
  4. RIFAMPIN [Concomitant]
     Active Substance: RIFAMPIN
  5. ELIQUIS [Concomitant]
     Active Substance: APIXABAN
  6. AZITHROMYCIN [Concomitant]
     Active Substance: AZITHROMYCIN

REACTIONS (7)
  - Vomiting [None]
  - Blood sodium decreased [None]
  - Therapy cessation [None]
  - Drug ineffective [None]
  - Drug interaction [None]
  - Bile duct cancer [None]
  - Thrombosis [None]

NARRATIVE: CASE EVENT DATE: 20251103
